FAERS Safety Report 8736607 (Version 2)
Quarter: 2012Q4

REPORT INFORMATION
  Report Type: 
  Country: FR (occurrence: FR)
  Receive Date: 20120822
  Receipt Date: 20121114
  Transmission Date: 20130627
  Serious: Yes (Disabling)
  Sender: FDA-Public Use
  Company Number: FR-GLAXOSMITHKLINE-B0823106A

PATIENT
  Sex: Female

DRUGS (3)
  1. REQUIP LP [Suspect]
     Indication: PARKINSON^S DISEASE
     Route: 048
  2. AZILECT [Suspect]
     Indication: PARKINSON^S DISEASE
     Dosage: 1MG Per day
     Route: 048
  3. SINEMET [Suspect]
     Indication: PARKINSON^S DISEASE
     Dosage: 100MG Three times per day
     Route: 048
     Dates: end: 20120709

REACTIONS (4)
  - Bursitis [Unknown]
  - Rotator cuff syndrome [Unknown]
  - Tendonitis [Unknown]
  - Incorrect dose administered [Unknown]
